FAERS Safety Report 19718331 (Version 2)
Quarter: 2021Q3

REPORT INFORMATION
  Report Type: Spontaneous
  Country: DE (occurrence: DE)
  Receive Date: 20210818
  Receipt Date: 20210820
  Transmission Date: 20211014
  Serious: No
  Sender: FDA-Public Use
  Company Number: NVSC2021DE185794

PATIENT
  Sex: Female

DRUGS (1)
  1. SIMBRINZA [Suspect]
     Active Substance: BRIMONIDINE TARTRATE\BRINZOLAMIDE
     Indication: OCULAR DISCOMFORT
     Dosage: UNK (0?0?1)
     Route: 065
     Dates: start: 20210809

REACTIONS (3)
  - Eye irritation [Unknown]
  - Eye colour change [Unknown]
  - Eye pain [Unknown]

NARRATIVE: CASE EVENT DATE: 20210809
